FAERS Safety Report 4994322-3 (Version None)
Quarter: 2006Q2

REPORT INFORMATION
  Report Type: 
  Country: None (occurrence: None)
  Receive Date: 20060503
  Receipt Date: 20060425
  Transmission Date: 20061013
  Serious: Yes (Death, Other)
  Sender: FDA-Public Use
  Company Number: 2005-04-0025

PATIENT
  Age: 52 Year
  Sex: Male
  Weight: 67 kg

DRUGS (10)
  1. PEG-INTRON [Suspect]
     Indication: HEPATITIS C
     Dosage: 100 MCG QWK SUBCUTANEOUS
     Route: 058
     Dates: start: 20050215, end: 20050322
  2. RIBAVIRIN [Suspect]
     Indication: HEPATITIS C
     Dosage: 1000 MG QD ORAL
     Route: 048
     Dates: start: 20050215, end: 20050323
  3. MORPHINE SULFATE [Concomitant]
  4. ARTHROTEC TABS [Concomitant]
  5. AMITRIPTYLINE HCL [Concomitant]
  6. HYDROCHLOROTHIAZIDE [Concomitant]
  7. ADALAT [Concomitant]
  8. LORAZEPAM [Concomitant]
  9. BACLOFEN [Concomitant]
  10. RANITIDINE [Concomitant]

REACTIONS (4)
  - EMPHYSEMA [None]
  - HEPATIC CIRRHOSIS [None]
  - PNEUMONIA [None]
  - PULMONARY OEDEMA [None]
